FAERS Safety Report 9331174 (Version 1)
Quarter: 2013Q2

REPORT INFORMATION
  Report Type: Spontaneous
  Country: US (occurrence: US)
  Receive Date: 20130605
  Receipt Date: 20130605
  Transmission Date: 20140414
  Serious: Yes (Other)
  Sender: FDA-Public Use
  Company Number: US-009507513-1303USA007189

PATIENT
  Sex: Male

DRUGS (10)
  1. SAPHRIS [Suspect]
     Indication: INSOMNIA
     Dosage: 5 MG, QD FOR 2 WEEKS
     Dates: start: 2012, end: 2012
  2. PRILOSEC [Concomitant]
     Dosage: UNK
  3. ADDERALL TABLETS [Concomitant]
     Dosage: UNK
  4. ATIVAN [Concomitant]
  5. TRAMADOL HYDROCHLORIDE [Concomitant]
  6. ZANAFLEX [Concomitant]
  7. EFFEXOR XR [Concomitant]
  8. WELLBUTRIN XL [Concomitant]
  9. LOPID [Concomitant]
  10. FLONASE [Concomitant]

REACTIONS (2)
  - Aggression [Recovered/Resolved]
  - Aggression [Recovered/Resolved]
